FAERS Safety Report 10756614 (Version 1)
Quarter: 2015Q1

REPORT INFORMATION
  Report Type: Spontaneous
  Country: US (occurrence: US)
  Receive Date: 20150202
  Receipt Date: 20150202
  Transmission Date: 20150721
  Serious: No
  Sender: FDA-Public Use
  Company Number: US-GLAXOSMITHKLINE-US2015010545

PATIENT
  Sex: Female

DRUGS (1)
  1. ABREVA [Suspect]
     Active Substance: DOCOSANOL
     Indication: ORAL HERPES
     Dosage: UNK
     Route: 061
     Dates: start: 20150116, end: 20150121

REACTIONS (4)
  - Application site scar [Recovering/Resolving]
  - Oral herpes [Recovered/Resolved]
  - Application site scab [Recovered/Resolved]
  - Drug administration error [Recovered/Resolved]
